FAERS Safety Report 8951411 (Version 1)
Quarter: 2012Q4

REPORT INFORMATION
  Report Type: 
  Country: JP (occurrence: JP)
  Receive Date: 20121207
  Receipt Date: 20121207
  Transmission Date: 20130627
  Serious: Yes (Other)
  Sender: FDA-Public Use
  Company Number: JP-JNJFOC-20121200489

PATIENT

DRUGS (4)
  1. DOXORUBICIN [Suspect]
     Indication: BREAST CANCER
     Dosage: over 30 min
     Route: 042
  2. CYCLOPHOSPHAMIDE [Suspect]
     Indication: BREAST CANCER
     Dosage: over 1 hour
     Route: 042
  3. DOCETAXEL [Suspect]
     Indication: BREAST CANCER
     Dosage: over 1 hour
     Route: 042
  4. EPIRUBICIN [Suspect]
     Indication: BREAST CANCER
     Dosage: over 30 min
     Route: 042

REACTIONS (1)
  - Neuropathy peripheral [Unknown]
